FAERS Safety Report 8582844-8 (Version None)
Quarter: 2012Q3

REPORT INFORMATION
  Report Type: 
  Country: None (occurrence: None)
  Receive Date: 20120809
  Receipt Date: 20120706
  Transmission Date: 20120928
  Serious: No
  Sender: FDA-Public Use
  Company Number: US-ASTRAZENECA-2012SE19622

PATIENT
  Age: 48 Year
  Sex: Female

DRUGS (2)
  1. PREDNISONE TAB [Suspect]
  2. RHINOCORT [Suspect]
     Route: 045

REACTIONS (5)
  - BLOOD GLUCOSE DECREASED [None]
  - THROAT IRRITATION [None]
  - INTENTIONAL DRUG MISUSE [None]
  - LARYNGITIS [None]
  - PHARYNGITIS [None]
